FAERS Safety Report 12093145 (Version 1)
Quarter: 2016Q1

REPORT INFORMATION
  Report Type: Spontaneous
  Country: US (occurrence: None)
  Receive Date: 20160218
  Receipt Date: 20160218
  Transmission Date: 20160526
  Serious: No
  Sender: FDA-Public Use
  Company Number: None

PATIENT
  Age: 34 Year
  Sex: Female
  Weight: 58.97 kg

DRUGS (15)
  1. HUMALOG INSULIN PUMP [Concomitant]
  2. LANTUS INSULIN PEN (OFF-PUMP PLAN) [Concomitant]
  3. CONTINUOUS GLUCOSE MONITOR [Concomitant]
  4. ADDERALL XR [Concomitant]
     Active Substance: AMPHETAMINE ASPARTATE\AMPHETAMINE SULFATE\DEXTROAMPHETAMINE SACCHARATE\DEXTROAMPHETAMINE SULFATE
  5. MAXALT [Concomitant]
     Active Substance: RIZATRIPTAN BENZOATE
  6. SYNTHROID [Concomitant]
     Active Substance: LEVOTHYROXINE SODIUM
  7. MOTRIN [Concomitant]
     Active Substance: IBUPROFEN
  8. MOTRIN PM [Concomitant]
     Active Substance: DIPHENHYDRAMINE CITRATE\IBUPROFEN
  9. BELSOMRA [Suspect]
     Active Substance: SUVOREXANT
     Indication: SLEEP DISORDER
     Dosage: 1 PILL ONCE DAILY TAKEN BY MOUTH
     Route: 048
     Dates: start: 20160125, end: 20160217
  10. CALCIUM SUPPLEMENT CHEWS [Concomitant]
  11. TRI-SPRINTEC CONTRACEPTIVE [Concomitant]
  12. MULTIVITAMIN GUMMIES [Concomitant]
  13. ATIVAN [Concomitant]
     Active Substance: LORAZEPAM
  14. ALLEGRA [Concomitant]
     Active Substance: FEXOFENADINE HYDROCHLORIDE
  15. EFFEXOR [Concomitant]
     Active Substance: VENLAFAXINE HYDROCHLORIDE

REACTIONS (3)
  - Migraine [None]
  - Condition aggravated [None]
  - Headache [None]

NARRATIVE: CASE EVENT DATE: 20160125
